FAERS Safety Report 9355177 (Version 1)
Quarter: 2013Q2

REPORT INFORMATION
  Report Type: Spontaneous
  Country: GB (occurrence: GB)
  Receive Date: 20130619
  Receipt Date: 20130619
  Transmission Date: 20140414
  Serious: Yes (Other)
  Sender: FDA-Public Use
  Company Number: PHFR2013GB003420

PATIENT
  Age: 59 Year
  Sex: Female

DRUGS (2)
  1. TERBINAFINE [Suspect]
     Indication: ONYCHOMYCOSIS
     Dosage: 1 DF, QD
     Dates: start: 201203, end: 201206
  2. BECLOMETASONE [Concomitant]
     Indication: ASTHMA PROPHYLAXIS
     Dosage: UNK UKN, UNK

REACTIONS (2)
  - Pain in extremity [Not Recovered/Not Resolved]
  - Paraesthesia [Not Recovered/Not Resolved]
